FAERS Safety Report 19184027 (Version 1)
Quarter: 2021Q2

REPORT INFORMATION
  Report Type: Spontaneous
  Country: BR (occurrence: BR)
  Receive Date: 20210427
  Receipt Date: 20210427
  Transmission Date: 20210717
  Serious: Yes (Hospitalization, Other)
  Sender: FDA-Public Use
  Company Number: NVSC2021BR093309

PATIENT
  Sex: Female

DRUGS (1)
  1. GILENYA [Suspect]
     Active Substance: FINGOLIMOD HYDROCHLORIDE
     Indication: PRODUCT USED FOR UNKNOWN INDICATION
     Dosage: (STARTED: 6 YEARS AGO, STOPPED: 23 DAYS AGO)
     Route: 065

REACTIONS (5)
  - Headache [Unknown]
  - Optic neuritis [Unknown]
  - Product availability issue [Unknown]
  - Visual impairment [Unknown]
  - Affect lability [Unknown]
